FAERS Safety Report 10141360 (Version 1)
Quarter: 2014Q2

REPORT INFORMATION
  Report Type: Spontaneous
  Country: GB (occurrence: GB)
  Receive Date: 20140429
  Receipt Date: 20140429
  Transmission Date: 20141212
  Serious: Yes (Hospitalization)
  Sender: FDA-Public Use
  Company Number: PHHY2014GB050605

PATIENT
  Age: 57 Year
  Sex: Female

DRUGS (15)
  1. ACICLOVIR [Suspect]
     Indication: ENCEPHALITIS
     Route: 042
     Dates: start: 20140220, end: 20140224
  2. CEFTRIAXONE [Suspect]
     Indication: ENCEPHALITIS
     Dosage: 1 G, UNK
     Route: 042
     Dates: start: 20140220
  3. PARACETAMOL [Suspect]
     Indication: ENCEPHALITIS
     Dosage: 1 G, QID (STARTED THIS ADMISSION)
  4. ASPIRIN [Concomitant]
     Dosage: 75 MG, QD
  5. CHLORDIAZEPOXIDE [Concomitant]
     Dates: start: 20140217
  6. FRAGMIN [Concomitant]
     Dosage: 5000 IU, QD
  7. HALOPERIDOL [Concomitant]
     Dosage: 1 MG, TWICE DAILY WHEN REQUIRED
     Route: 040
     Dates: start: 20140217, end: 20140223
  8. LAMOTRIGINE [Concomitant]
     Dosage: 450 MG, BID
  9. LEVETIRACETAM [Concomitant]
     Dosage: 1 DF, (500MG EVERY MORNING AND 1G AT NIGHT)
  10. LORAZEPAM [Concomitant]
     Dosage: 0.5 MG, QID
     Route: 040
     Dates: start: 20140224
  11. MULTI-VIT [Concomitant]
     Dosage: 1 DF, QD
     Dates: start: 20140216
  12. NIMOTOP [Concomitant]
     Dosage: 60 MG, 6QD, EVERY FOUR HOURS
  13. OMEPRAZOLE [Concomitant]
     Dosage: 20 MG, QD
     Dates: start: 20140216
  14. PABRINEX [Concomitant]
     Dosage: 2 DF, TID
     Dates: start: 20140216, end: 20140219
  15. SANDO K [Concomitant]
     Dosage: 1 DF, BID (POTASSIUM 12MMOL)
     Dates: start: 20140224

REACTIONS (1)
  - Alanine aminotransferase increased [Recovered/Resolved with Sequelae]
